FAERS Safety Report 5830203-0 (Version None)
Quarter: 2008Q3

REPORT INFORMATION
  Report Type: 
  Country: None (occurrence: None)
  Receive Date: 20080801
  Receipt Date: 20080728
  Transmission Date: 20090109
  Serious: Yes (Other)
  Sender: FDA-Public Use
  Company Number: A0734548A

PATIENT
  Age: 53 Year
  Sex: Female

DRUGS (8)
  1. ADVAIR DISKUS 100/50 [Suspect]
     Dosage: 1PUFF TWICE PER DAY
     Route: 055
     Dates: start: 20010101
  2. CELEBREX [Concomitant]
  3. DUONEB [Concomitant]
  4. ALBUTEROL [Concomitant]
  5. HYZAAR [Concomitant]
  6. SINGULAIR [Concomitant]
  7. METFORMIN HCL [Concomitant]
  8. SPIRIVA [Concomitant]

REACTIONS (4)
  - CHEST DISCOMFORT [None]
  - DRUG INEFFECTIVE [None]
  - FEELING ABNORMAL [None]
  - PHARMACEUTICAL PRODUCT COMPLAINT [None]
